FAERS Safety Report 11881881 (Version 2)
Quarter: 2016Q3

REPORT INFORMATION
  Report Type: Report from Study
  Country: US (occurrence: US)
  Receive Date: 20151231
  Receipt Date: 20160926
  Transmission Date: 20161109
  Serious: Yes (Hospitalization)
  Sender: FDA-Public Use
  Company Number: US-009507513-1512USA012454

PATIENT
  Age: 72 Year
  Sex: Female
  Weight: 110 kg

DRUGS (22)
  1. BIOTIN [Concomitant]
     Active Substance: BIOTIN
  2. ELIQUIS [Concomitant]
     Active Substance: APIXABAN
  3. HYDRALAZINE [Suspect]
     Active Substance: HYDRALAZINE HYDROCHLORIDE
     Indication: HYPERTENSION
     Dosage: 25 MG, BID
     Route: 048
     Dates: start: 201507, end: 20151111
  4. HYDROXOCOBALAMIN [Concomitant]
     Active Substance: HYDROXOCOBALAMIN
  5. UBIDECARENONE [Concomitant]
     Active Substance: UBIDECARENONE
  6. NITROGLYCERIN. [Concomitant]
     Active Substance: NITROGLYCERIN
  7. CRESTOR [Concomitant]
     Active Substance: ROSUVASTATIN CALCIUM
  8. NAPROXEN. [Suspect]
     Active Substance: NAPROXEN
     Dosage: UNK
     Route: 048
     Dates: start: 20140606, end: 20140920
  9. OMEPRAZOLE. [Concomitant]
     Active Substance: OMEPRAZOLE
  10. METFORMIN [Concomitant]
     Active Substance: METFORMIN HYDROCHLORIDE
  11. CARVEDILOL. [Suspect]
     Active Substance: CARVEDILOL
     Indication: HYPERTENSION
     Dosage: 25 MG, BID
     Route: 048
     Dates: start: 201412
  12. FERROUS SULFATE. [Concomitant]
     Active Substance: FERROUS SULFATE
  13. AMIODARONE [Concomitant]
     Active Substance: AMIODARONE
  14. GABAPENTIN. [Concomitant]
     Active Substance: GABAPENTIN
  15. FLONASE [Concomitant]
     Active Substance: FLUTICASONE PROPIONATE
  16. HUMALOG [Concomitant]
     Active Substance: INSULIN LISPRO
  17. CALCIUM (UNSPECIFIED) (+) VITAMIN D (UNSPECIFIED) [Concomitant]
     Active Substance: CALCIUM CARBONATE\VITAMIN D
  18. LEVEMIR [Concomitant]
     Active Substance: INSULIN DETEMIR
  19. TOVIAZ [Concomitant]
     Active Substance: FESOTERODINE FUMARATE
  20. LISINOPRIL. [Suspect]
     Active Substance: LISINOPRIL
     Indication: HYPERTENSION
     Dosage: 20 MG, BID
     Route: 048
     Dates: start: 2012, end: 20151111
  21. MAGNESIUM (UNSPECIFIED) [Concomitant]
     Active Substance: MAGNESIUM
  22. COLASE [Concomitant]

REACTIONS (1)
  - Syncope [Unknown]

NARRATIVE: CASE EVENT DATE: 20151110
